FAERS Safety Report 5678944-2 (Version None)
Quarter: 2008Q1

REPORT INFORMATION
  Report Type: 
  Country: None (occurrence: None)
  Receive Date: 20080325
  Receipt Date: 20080312
  Transmission Date: 20080703
  Serious: Yes (Hospitalization)
  Sender: FDA-Public Use
  Company Number: PL-AMGEN-UK265791

PATIENT
  Sex: Male

DRUGS (6)
  1. PANITUMUMAB [Suspect]
     Indication: COLORECTAL CANCER
     Route: 042
     Dates: start: 20070913, end: 20080131
  2. OXALIPLATIN [Concomitant]
     Route: 042
     Dates: start: 20080131
  3. FLUOROURACIL [Concomitant]
     Route: 040
     Dates: start: 20080131, end: 20080201
  4. LEUCOVORIN CALCIUM [Concomitant]
     Dates: start: 20080131, end: 20080201
  5. ONDANSETRON [Concomitant]
     Route: 065
     Dates: start: 20080121, end: 20080121
  6. DEXAMETHASONE TAB [Concomitant]
     Route: 065
     Dates: start: 20080121, end: 20080121

REACTIONS (1)
  - CONJUNCTIVITIS INFECTIVE [None]
